FAERS Safety Report 9287697 (Version 2)
Quarter: 2013Q4

REPORT INFORMATION
  Report Type: Report from Study
  Country: CA (occurrence: CA)
  Receive Date: 20130514
  Receipt Date: 20131108
  Transmission Date: 20140711
  Serious: Yes (Life-Threatening)
  Sender: FDA-Public Use
  Company Number: CA-JNJFOC-20130506201

PATIENT
  Age: 39 Year
  Sex: Female
  Weight: 59.88 kg

DRUGS (1)
  1. REMICADE [Suspect]
     Indication: COLITIS ULCERATIVE
     Dosage: TWO DOSES OF INFLIXIMAB
     Route: 042
     Dates: start: 201204, end: 201204

REACTIONS (2)
  - Meningitis [Unknown]
  - Decreased immune responsiveness [Unknown]
